FAERS Safety Report 7247589-5 (Version None)
Quarter: 2011Q1

REPORT INFORMATION
  Report Type: 
  Country: None (occurrence: None)
  Receive Date: 20110127
  Receipt Date: 20110121
  Transmission Date: 20110831
  Serious: Yes (Hospitalization)
  Sender: FDA-Public Use
  Company Number: DK-ROCHE-755234

PATIENT
  Sex: Female
  Weight: 68 kg

DRUGS (3)
  1. RIVOTRIL [Suspect]
     Indication: ANXIETY
     Route: 048
  2. HEXALID [Suspect]
     Indication: ANXIETY
     Route: 048
  3. ALOPAM [Suspect]
     Indication: ANXIETY
     Route: 048

REACTIONS (5)
  - SEDATION [None]
  - WITHDRAWAL SYNDROME [None]
  - INSOMNIA [None]
  - DISTURBANCE IN ATTENTION [None]
  - MEMORY IMPAIRMENT [None]
